FAERS Safety Report 8821360 (Version 2)
Quarter: 2012Q4

REPORT INFORMATION
  Report Type: 
  Country: US (occurrence: US)
  Receive Date: 20121002
  Receipt Date: 20121113
  Transmission Date: 20130627
  Serious: Yes (Hospitalization)
  Sender: FDA-Public Use
  Company Number: US-ELI_LILLY_AND_COMPANY-US201209006191

PATIENT
  Sex: Male

DRUGS (3)
  1. ZYPREXA RELPREVV [Suspect]
     Indication: SCHIZOAFFECTIVE DISORDER
     Dosage: 300 mg, 2/M
     Route: 030
     Dates: start: 20120618
  2. GEODON [Concomitant]
  3. CLOZAPINE [Concomitant]

REACTIONS (1)
  - Thrombosis [Unknown]
